FAERS Safety Report 18895825 (Version 8)
Quarter: 2021Q3

REPORT INFORMATION
  Report Type: Spontaneous
  Country: DE (occurrence: DE)
  Receive Date: 20210216
  Receipt Date: 20210904
  Transmission Date: 20211014
  Serious: Yes (Other)
  Sender: FDA-Public Use
  Company Number: DE-AUROBINDO-AUR-APL-2020-059033

PATIENT
  Age: 76 Year
  Sex: Female
  Weight: 66 kg

DRUGS (24)
  1. VECTIBIX [Suspect]
     Active Substance: PANITUMUMAB
     Indication: COLORECTAL CANCER METASTATIC
     Dosage: 400 MILLIGRAM
     Route: 042
     Dates: start: 20200902
  2. SIMVASTATIN. [Concomitant]
     Active Substance: SIMVASTATIN
     Indication: METABOLIC DISORDER
     Dosage: 20 MILLIGRAM, DAILY
     Route: 048
  3. BRICANYL [Concomitant]
     Active Substance: TERBUTALINE SULFATE
     Indication: BRONCHOSPASM
     Dosage: 0.5 MILLIGRAM, DAILY
     Route: 058
     Dates: start: 20201028
  4. JONOSTERIL [Concomitant]
     Indication: BLOOD CREATININE INCREASED
     Dosage: UNK UNK, ONCE A DAY (500?1500 MILLILITER, QD)
     Route: 065
     Dates: start: 20201104
  5. NOVAMIN [Concomitant]
     Indication: PAIN
     Dosage: 500 MILLIGRAM, FOUR TIMES/DAY
     Route: 048
     Dates: start: 2020
  6. PREDNISOLON [Concomitant]
     Active Substance: PREDNISOLONE
     Indication: BRONCHOSPASM
     Dosage: 200 MILLIGRAM, DAILY
     Route: 042
     Dates: start: 20201028
  7. RIOPAN [Concomitant]
     Indication: ABDOMINAL PAIN UPPER
     Dosage: 10 MILLILITER, AS NECESSARY
     Route: 048
     Dates: start: 20201014
  8. FOLINIC ACID [Suspect]
     Active Substance: LEUCOVORIN
     Dosage: 640 MILLIGRAM
     Route: 065
     Dates: start: 20210324
  9. AKYNZEO [Concomitant]
     Active Substance: NETUPITANT\PALONOSETRON HYDROCHLORIDE
     Indication: PRODUCT USED FOR UNKNOWN INDICATION
     Dosage: 300 MILLIGRAM, CYCLICAL
     Route: 048
     Dates: start: 20200902
  10. AMLODIPIN [Concomitant]
     Active Substance: AMLODIPINE BESYLATE
     Indication: HYPERTENSION
     Dosage: 2.5 MILLIGRAM, DAILY
     Route: 048
     Dates: start: 2020
  11. DEXAMETHASONE. [Concomitant]
     Active Substance: DEXAMETHASONE
     Indication: PRODUCT USED FOR UNKNOWN INDICATION
     Dosage: 8 MILLIGRAM, CYCLICAL
     Route: 042
     Dates: start: 20200902
  12. METOCLOPRAMIDE. [Concomitant]
     Active Substance: METOCLOPRAMIDE
     Indication: NAUSEA
     Dosage: 10 MILLIGRAM, AS NECESSARY
     Route: 048
     Dates: start: 20200902
  13. FLUOROURACIL. [Suspect]
     Active Substance: FLUOROURACIL
     Indication: COLORECTAL CANCER METASTATIC
     Dosage: 4080 MILLIGRAM
     Route: 042
     Dates: start: 20200902
  14. VECTIBIX [Suspect]
     Active Substance: PANITUMUMAB
     Dosage: 360 MILLIGRAM
     Route: 042
     Dates: start: 20210324
  15. METOPROLOL. [Concomitant]
     Active Substance: METOPROLOL
     Indication: HYPERTENSION
     Dosage: 50 MILLIGRAM, DAILY
     Route: 048
     Dates: start: 2020
  16. LOPERAMID [Concomitant]
     Active Substance: LOPERAMIDE
     Indication: DIARRHOEA
     Dosage: 1.86 MILLIGRAM, AS NECESSARY
     Route: 048
     Dates: start: 20200903
  17. OXALIPLATIN. [Suspect]
     Active Substance: OXALIPLATIN
     Indication: COLORECTAL CANCER METASTATIC
     Dosage: 115 MILLIGRAM
     Route: 065
     Dates: start: 20200902
  18. OXALIPLATIN. [Suspect]
     Active Substance: OXALIPLATIN
     Dosage: 144 MILLIGRAM
     Route: 065
     Dates: start: 20200916
  19. STANGYL [Concomitant]
     Active Substance: TRIMIPRAMINE MALEATE
     Indication: DEPRESSION
     Dosage: 100 MILLIGRAM, ONCE A DAY (50 MILLIGRAM, BID)
     Route: 048
  20. VERGENTAN [Concomitant]
     Active Substance: ALIZAPRIDE HYDROCHLORIDE
     Indication: NAUSEA
     Dosage: 50 MILLIGRAM, AS NECESSARY
     Route: 048
     Dates: start: 20200910
  21. FOLINIC ACID [Suspect]
     Active Substance: LEUCOVORIN
     Indication: COLORECTAL CANCER METASTATIC
     Dosage: 680 MILLIGRAM
     Route: 065
     Dates: start: 20200902
  22. FLUOROURACIL. [Suspect]
     Active Substance: FLUOROURACIL
     Dosage: 3840 MILLIGRAM
     Route: 042
     Dates: start: 20210324
  23. MINOCYCLINE [Concomitant]
     Active Substance: MINOCYCLINE HYDROCHLORIDE
     Indication: PROPHYLAXIS
     Dosage: 50 MILLIGRAM, TWO TIMES A DAY
     Route: 048
     Dates: start: 20200902
  24. PANTOZOL [Concomitant]
     Active Substance: PANTOPRAZOLE SODIUM
     Indication: CHRONIC GASTRITIS
     Dosage: 40 MILLIGRAM, DAILY
     Route: 048
     Dates: start: 20200910

REACTIONS (3)
  - Hypomagnesaemia [Not Recovered/Not Resolved]
  - Hypocalcaemia [Not Recovered/Not Resolved]
  - Hypokalaemia [Recovered/Resolved]

NARRATIVE: CASE EVENT DATE: 20201104
